FAERS Safety Report 23983855 (Version 2)
Quarter: 2024Q3

REPORT INFORMATION
  Report Type: Report from Study
  Country: US (occurrence: US)
  Receive Date: 20240618
  Receipt Date: 20240704
  Transmission Date: 20241016
  Serious: Yes (Hospitalization)
  Sender: BIOGEN
  Company Number: US-BIOGEN-2024BI01268943

PATIENT
  Age: 69 Year
  Sex: Female

DRUGS (1)
  1. VUMERITY [Suspect]
     Active Substance: DIROXIMEL FUMARATE
     Indication: Multiple sclerosis
     Dosage: MAINTENANCE DOSE
     Route: 050
     Dates: start: 20211130

REACTIONS (6)
  - Motor dysfunction [Not Recovered/Not Resolved]
  - Urinary retention [Recovered/Resolved]
  - Constipation [Recovered/Resolved]
  - Mobility decreased [Not Recovered/Not Resolved]
  - Multiple sclerosis [Recovered/Resolved]
  - Parkinson^s disease [Not Recovered/Not Resolved]

NARRATIVE: CASE EVENT DATE: 20240501
